FAERS Safety Report 20534914 (Version 5)
Quarter: 2023Q4

REPORT INFORMATION
  Report Type: Spontaneous
  Country: US (occurrence: US)
  Receive Date: 20220302
  Receipt Date: 20231006
  Transmission Date: 20240110
  Serious: Yes (Disabling, Other)
  Sender: FDA-Public Use
  Company Number: US-JNJFOC-20220300782

PATIENT
  Age: 6 Decade
  Sex: Female

DRUGS (11)
  1. ELMIRON [Suspect]
     Active Substance: PENTOSAN POLYSULFATE SODIUM
     Indication: Cystitis interstitial
     Dosage: PER DAY
     Route: 048
     Dates: start: 200106, end: 201506
  2. OMEPRAZOLE [Concomitant]
     Active Substance: OMEPRAZOLE
     Indication: Gastrooesophageal reflux disease
     Dates: start: 200106
  3. ZOLPIDEM TARTRATE [Concomitant]
     Active Substance: ZOLPIDEM TARTRATE
     Indication: Sleep disorder therapy
     Dates: start: 201109
  4. TRAMADOL [Concomitant]
     Active Substance: TRAMADOL\TRAMADOL HYDROCHLORIDE
     Indication: Pain
     Dates: start: 201505
  5. METOPROLOL SUCCINATE [Concomitant]
     Active Substance: METOPROLOL SUCCINATE
     Indication: Hypertension
     Dates: start: 2018, end: 2020
  6. FORTEO [Concomitant]
     Active Substance: TERIPARATIDE
     Indication: Osteoporosis
     Dates: start: 20180323, end: 2019
  7. AZELASTINE HYDROCHLORIDE [Concomitant]
     Active Substance: AZELASTINE HYDROCHLORIDE
     Indication: Allergic respiratory disease
     Dates: start: 20180904, end: 201901
  8. BENZONATATE [Concomitant]
     Active Substance: BENZONATATE
     Indication: Cough
     Dates: start: 20220423
  9. CHOLECALCIFEROL [Concomitant]
     Active Substance: CHOLECALCIFEROL
     Indication: Vitamin supplementation
     Dates: start: 20160216
  10. TIMOLOL [Concomitant]
     Active Substance: TIMOLOL
     Dates: start: 20211221
  11. TRETINOIN [Concomitant]
     Active Substance: TRETINOIN
     Indication: Acne
     Dates: start: 20160422

REACTIONS (4)
  - Blindness [Unknown]
  - Age-related macular degeneration [Not Recovered/Not Resolved]
  - Retinal pigmentation [Unknown]
  - Anxiety [Not Recovered/Not Resolved]

NARRATIVE: CASE EVENT DATE: 20010101
